FAERS Safety Report 7759508-3 (Version None)
Quarter: 2011Q3

REPORT INFORMATION
  Report Type: 
  Country: None (occurrence: None)
  Receive Date: 20110919
  Receipt Date: 20110919
  Transmission Date: 20111222
  Serious: No
  Sender: FDA-Public Use
  Company Number: None

PATIENT
  Age: 58 Year
  Sex: Female
  Weight: 64.41 kg

DRUGS (3)
  1. CYMBALTA [Suspect]
     Indication: MUSCULOSKELETAL PAIN
     Dosage: 1 PILL
     Dates: start: 20110625, end: 20110917
  2. CYMBALTA [Suspect]
     Indication: NERVOUS SYSTEM DISORDER
     Dosage: 1 PILL
     Dates: start: 20110625, end: 20110917
  3. CYMBALTA [Suspect]
     Indication: BACK DISORDER
     Dosage: 1 PILL
     Dates: start: 20110625, end: 20110917

REACTIONS (1)
  - ALOPECIA [None]
